FAERS Safety Report 9277114 (Version 2)
Quarter: 2013Q4

REPORT INFORMATION
  Report Type: Spontaneous
  Country: JP (occurrence: JP)
  Receive Date: 20130507
  Receipt Date: 20131107
  Transmission Date: 20140711
  Serious: Yes (Death, Other)
  Sender: FDA-Public Use
  Company Number: JP-BRISTOL-MYERS SQUIBB COMPANY-18862474

PATIENT
  Age: 64 Year
  Sex: Male
  Weight: 67.5 kg

DRUGS (19)
  1. ABILIFY TABS [Suspect]
     Indication: MANIA
     Dosage: 22MR13-DOSE INC 30MG/D
     Route: 048
     Dates: start: 20130314, end: 20130321
  2. LIMAS [Suspect]
     Dosage: 800MG-20JA12-8JL12:22MR13-25AP13.?600MG-9JL12-21MR13
     Route: 048
     Dates: start: 20110808, end: 20120119
  3. SODIUM VALPROATE [Suspect]
     Dosage: 200MG-5-12SE11,12SE-14SE11,15SE11-19JA12,20JA12-3AP13,6FE12-3AP13.800MG-4AP-17AP13.600MG-18-25AP13
     Route: 048
     Dates: start: 20110808, end: 20110904
  4. LAMISIL [Suspect]
     Route: 048
     Dates: start: 20130415, end: 20130425
  5. METHYCOBAL [Concomitant]
     Dosage: TAB
     Dates: start: 20110808, end: 20130418
  6. EPL [Concomitant]
     Dates: start: 20110808, end: 20130418
  7. BERIZYM [Concomitant]
  8. RISPERIDONE [Concomitant]
  9. LENDORMIN [Concomitant]
     Dates: start: 20110808, end: 20130425
  10. ALLOPURINOL [Concomitant]
     Dates: start: 20110808, end: 20130425
  11. MAGLAX [Concomitant]
     Dates: start: 20110808, end: 20130425
  12. PURSENNID [Concomitant]
     Dates: start: 20110808, end: 20130425
  13. SODIUM PICOSULFATE [Concomitant]
     Dates: start: 20110922, end: 20130425
  14. AKINETON [Concomitant]
     Dates: start: 20120307, end: 20130425
  15. TAMSULOSIN HCL [Concomitant]
     Dates: start: 20120602, end: 20130425
  16. MILMAG [Concomitant]
     Dates: start: 20130402, end: 20130425
  17. LEVOMEPROMAZINE MALEATE [Concomitant]
     Dates: start: 20130405, end: 20130422
  18. VEGETAMIN A [Concomitant]
     Dates: start: 20130408, end: 20130423
  19. ROHYPNOL [Concomitant]

REACTIONS (5)
  - Rhabdomyolysis [Fatal]
  - Sleep paralysis [Unknown]
  - Cyanosis [Unknown]
  - Dyslalia [Unknown]
  - Urinary incontinence [Unknown]
